FAERS Safety Report 13245279 (Version 4)
Quarter: 2017Q3

REPORT INFORMATION
  Report Type: Report from Study
  Country: FR (occurrence: FR)
  Receive Date: 20170217
  Receipt Date: 20170720
  Transmission Date: 20171127
  Serious: Yes (Other)
  Sender: FDA-Public Use
  Company Number: FR-ROCHE-1892088

PATIENT
  Age: 75 Year
  Sex: Male

DRUGS (22)
  1. AZITHROMYCIN ANHYDROUS. [Concomitant]
     Active Substance: AZITHROMYCIN ANHYDROUS
     Indication: BRONCHITIS
     Route: 065
     Dates: start: 201701, end: 201701
  2. VALSARTAN. [Concomitant]
     Active Substance: VALSARTAN
     Indication: MYOCARDIAL INFARCTION
     Route: 065
     Dates: start: 201703
  3. BUDESONIDE. [Concomitant]
     Active Substance: BUDESONIDE
     Indication: BRONCHITIS
     Route: 065
     Dates: start: 201703, end: 20170317
  4. ACP-196 (BTK INHIBITOR) [Suspect]
     Active Substance: ACALABRUTINIB
     Indication: CHRONIC LYMPHOCYTIC LEUKAEMIA
     Dosage: LAST DOSE: 08/FEB/2017
     Route: 048
     Dates: start: 20161018, end: 20170208
  5. COLCHIMAX (FRANCE) [Concomitant]
     Active Substance: COLCHICINE\OPIUM, POWDERED\TIEMONIUM
     Indication: GOUT
     Dosage: AS NEEDED
     Route: 065
     Dates: start: 20161107, end: 20161113
  6. AZITHROMYCIN ANHYDROUS. [Concomitant]
     Active Substance: AZITHROMYCIN ANHYDROUS
     Route: 065
     Dates: start: 201702, end: 201702
  7. OXOMEMAZINE [Concomitant]
     Active Substance: OXOMEMAZINE
     Indication: BRONCHITIS
     Route: 065
     Dates: start: 201703, end: 20170314
  8. ATROVENT [Concomitant]
     Active Substance: IPRATROPIUM BROMIDE
     Indication: BRONCHITIS
     Route: 065
     Dates: start: 201703, end: 20170317
  9. PARACETAMOL [Concomitant]
     Active Substance: ACETAMINOPHEN
     Indication: ARTHRALGIA
     Route: 065
     Dates: start: 20161130
  10. KARDEGIC [Concomitant]
     Active Substance: ASPIRIN LYSINE
     Indication: MYOCARDIAL INFARCTION
     Route: 065
     Dates: start: 20170208
  11. TRIMETAZIDINE [Concomitant]
     Active Substance: TRIMETAZIDINE
     Route: 065
     Dates: start: 2008
  12. ATORVASTATINE [Concomitant]
     Active Substance: ATORVASTATIN
     Indication: MYOCARDIAL INFARCTION
     Route: 065
     Dates: start: 20170208
  13. PERINDOPRIL [Concomitant]
     Active Substance: PERINDOPRIL
     Indication: MYOCARDIAL INFARCTION
     Route: 065
     Dates: start: 20170208, end: 20170228
  14. TRAMADOL. [Concomitant]
     Active Substance: TRAMADOL
     Indication: ARTHRALGIA
     Dosage: AS NEEDED
     Route: 065
     Dates: start: 20161214
  15. ROVAMYCINE [Concomitant]
     Active Substance: SPIRAMYCIN
     Indication: BRONCHITIS
     Dosage: 3 MIU
     Route: 065
     Dates: start: 201703, end: 20170317
  16. DIPROSONE [Concomitant]
     Active Substance: BETAMETHASONE DIPROPIONATE
     Indication: GOUT
     Dosage: 1 APPLICATION
     Route: 065
     Dates: start: 201701, end: 20170120
  17. OBINUTUZUMAB. [Suspect]
     Active Substance: OBINUTUZUMAB
     Indication: CHRONIC LYMPHOCYTIC LEUKAEMIA
     Dosage: LAST DOSE PRIOR TO SAE:11/JAN/2017
     Route: 042
     Dates: start: 20161115, end: 20170208
  18. LASILIX [Concomitant]
     Active Substance: FUROSEMIDE
     Indication: INFUSION RELATED REACTION
     Route: 065
     Dates: start: 20161116, end: 20161116
  19. ADENURIC [Concomitant]
     Active Substance: FEBUXOSTAT
     Route: 065
     Dates: start: 201503
  20. BISOPROLOL [Concomitant]
     Active Substance: BISOPROLOL
     Indication: MYOCARDIAL INFARCTION
     Route: 065
     Dates: start: 20170208
  21. TRAMADOL. [Concomitant]
     Active Substance: TRAMADOL
     Indication: ARTHRALGIA
     Route: 065
     Dates: start: 201703, end: 20170317
  22. SERETIDE [Concomitant]
     Active Substance: FLUTICASONE PROPIONATE\SALMETEROL XINAFOATE
     Indication: DYSPNOEA
     Route: 065
     Dates: start: 201701, end: 20170120

REACTIONS (1)
  - Myocardial infarction [Recovered/Resolved]

NARRATIVE: CASE EVENT DATE: 20170208
